FAERS Safety Report 4548148-5 (Version None)
Quarter: 2005Q1

REPORT INFORMATION
  Report Type: 
  Country: None (occurrence: None)
  Receive Date: 20050104
  Receipt Date: 20050104
  Transmission Date: 20050727
  Serious: Yes (Death, Hospitalization)
  Sender: FDA-Public Use
  Company Number: None

PATIENT
  Age: 2 Year
  Sex: Male
  Weight: 15.9 kg

DRUGS (14)
  1. METHOTREXATE [Suspect]
     Dosage: ITM-10 MG
     Dates: start: 20041111, end: 20041119
  2. HYDROCORTISONE [Suspect]
     Dosage: H - 20 MG
     Dates: start: 20041111, end: 20041119
  3. CYTARABINE [Suspect]
     Dosage: A-38 MG
     Dates: start: 20041111, end: 20041119
  4. LEUCOVORIN [Suspect]
     Dosage: LEU 10MG IV / PO
     Route: 042
  5. . [Concomitant]
  6. CISPLATIN [Suspect]
  7. VINCRISTINE [Suspect]
     Dosage: VCR 1.3
     Dates: start: 20041111, end: 20041119
  8. DOXORUBICIN [Suspect]
     Dates: start: 20041111, end: 20041119
  9. MORPHINE [Concomitant]
  10. TYLENOL [Concomitant]
  11. OXACILLIN [Concomitant]
  12. BIOTIN [Concomitant]
  13. MAGIC MOUTHWASH [Concomitant]
  14. BACTRIM [Concomitant]

REACTIONS (6)
  - CENTRAL LINE INFECTION [None]
  - GRUNTING [None]
  - HYPOTENSION [None]
  - PLATELET COUNT ABNORMAL [None]
  - PNEUMOCOCCAL INFECTION [None]
  - PULMONARY EMBOLISM [None]
